FAERS Safety Report 9609361 (Version 1)
Quarter: 2013Q4

REPORT INFORMATION
  Report Type: Spontaneous
  Country: US (occurrence: None)
  Receive Date: 20131007
  Receipt Date: 20131007
  Transmission Date: 20140711
  Serious: Yes (Life-Threatening)
  Sender: FDA-Public Use
  Company Number: None

PATIENT
  Age: 53 Year
  Sex: Female

DRUGS (1)
  1. TACROLIMUS [Suspect]

REACTIONS (5)
  - Cardio-respiratory arrest [None]
  - Muscle twitching [None]
  - Petit mal epilepsy [None]
  - Posterior reversible encephalopathy syndrome [None]
  - Depressed level of consciousness [None]
